FAERS Safety Report 6272921-9 (Version None)
Quarter: 2009Q3

REPORT INFORMATION
  Report Type: 
  Country: None (occurrence: None)
  Receive Date: 20090717
  Receipt Date: 20090707
  Transmission Date: 20100115
  Serious: Yes (Other)
  Sender: FDA-Public Use
  Company Number: US-PFIZER INC-2009221405

PATIENT

DRUGS (20)
  1. CHANTIX [Suspect]
     Indication: SMOKING CESSATION THERAPY
     Dosage: 0.5 MG, 1X/DAY
  2. ADVAIR HFA [Concomitant]
     Dosage: UNK
  3. AMBIEN [Concomitant]
     Dosage: UNK
  4. ABILIFY [Concomitant]
     Dosage: UNK
  5. FLEXERIL [Concomitant]
     Dosage: UNK
  6. SPIRIVA [Concomitant]
     Dosage: UNK
  7. CATAPRES [Concomitant]
     Dosage: UNK
  8. NORVASC [Concomitant]
     Dosage: UNK
  9. COMBIVENT [Concomitant]
     Dosage: UNK
  10. CRESTOR [Concomitant]
     Dosage: UNK
  11. K-DUR [Concomitant]
     Dosage: UNK
  12. LASIX [Concomitant]
     Dosage: UNK
  13. LIDOCAINE [Concomitant]
     Dosage: UNK
  14. LYRICA [Concomitant]
     Dosage: UNK
  15. NEURONTIN [Concomitant]
     Dosage: UNK
  16. NITROGLYCERIN [Concomitant]
     Dosage: UNK
  17. OXYCONTIN [Concomitant]
     Dosage: UNK
  18. QUINAPRIL [Concomitant]
     Dosage: UNK
  19. PREDNISONE [Concomitant]
     Dosage: UNK
  20. VALTREX [Concomitant]
     Dosage: UNK

REACTIONS (3)
  - ANGINA PECTORIS [None]
  - BACK INJURY [None]
  - LIGAMENT RUPTURE [None]
